FAERS Safety Report 5962570-1 (Version None)
Quarter: 2008Q4

REPORT INFORMATION
  Report Type: 
  Country: None (occurrence: None)
  Receive Date: 20081121
  Receipt Date: 20081111
  Transmission Date: 20090506
  Serious: Yes (Other)
  Sender: FDA-Public Use
  Company Number: US-PFIZER INC-2008095839

PATIENT
  Sex: Female
  Weight: 74.8 kg

DRUGS (10)
  1. CHANTIX [Suspect]
     Indication: SMOKING CESSATION THERAPY
     Dates: start: 20080801
  2. SEROQUEL [Concomitant]
  3. TOPROL-XL [Concomitant]
  4. FENTANYL [Concomitant]
  5. HYDROMORPHONE HCL [Concomitant]
  6. ZOFRAN [Concomitant]
  7. PROMETHAZINE [Concomitant]
  8. METOCLOPRAMIDE [Concomitant]
  9. ACIPHEX [Concomitant]
  10. VALIUM [Concomitant]

REACTIONS (3)
  - BIPOLAR DISORDER [None]
  - DRUG ADMINISTRATION ERROR [None]
  - WEIGHT INCREASED [None]
